FAERS Safety Report 7280057-3 (Version None)
Quarter: 2011Q1

REPORT INFORMATION
  Report Type: 
  Country: None (occurrence: None)
  Receive Date: 20110208
  Receipt Date: 20110131
  Transmission Date: 20110831
  Serious: Yes (Other)
  Sender: FDA-Public Use
  Company Number: DE-AMGEN-DEUSP2010009052

PATIENT
  Age: 56 Year
  Sex: Male

DRUGS (10)
  1. ENBREL [Suspect]
     Dosage: 50 MG, WEEKLY
     Route: 058
     Dates: start: 20101111, end: 20101129
  2. ENBREL [Suspect]
     Indication: PSORIATIC ARTHROPATHY
     Dosage: 25 MG, 2X/WEEK
     Route: 058
  3. CELEBREX [Concomitant]
     Dosage: UNKNOWN
  4. ENBREL [Suspect]
     Dosage: 50 MG, WEEKLY
     Route: 058
     Dates: start: 20100201, end: 20100101
  5. PREDNISOLONE [Concomitant]
     Dosage: UNKNOWN
  6. AMITRIPTYLINE HCL [Concomitant]
     Dosage: UNKNOWN
  7. HUMIRA [Concomitant]
  8. AMITRIPTYLINE HCL [Concomitant]
     Dosage: UNKNOWN
  9. ENBREL [Suspect]
     Indication: PSORIASIS
     Dosage: 50 MG, WEEKLY
     Route: 058
     Dates: start: 20100201, end: 20100101
  10. TEMGESIC [Concomitant]
     Dosage: UNKNOWN

REACTIONS (4)
  - NAUSEA [None]
  - DIZZINESS [None]
  - RETCHING [None]
  - OCULAR HYPERAEMIA [None]
